FAERS Safety Report 21081619 (Version 1)
Quarter: 2022Q3

REPORT INFORMATION
  Report Type: Spontaneous
  Country: US (occurrence: None)
  Receive Date: 20220714
  Receipt Date: 20220714
  Transmission Date: 20221027
  Serious: Yes (unspecified)
  Sender: FDA-Public Use
  Company Number: None

PATIENT
  Age: 52 Year
  Sex: Female
  Weight: 58.5 kg

DRUGS (14)
  1. PAXLOVID [Suspect]
     Active Substance: NIRMATRELVIR\RITONAVIR
     Indication: COVID-19
     Dosage: OTHER QUANTITY : 5 TABLET(S);?
     Route: 048
  2. HYDROCORTISONE STEROID PILL [Concomitant]
  3. PLAQUENIL [Concomitant]
     Active Substance: HYDROXYCHLOROQUINE SULFATE
  4. CYMBALTA [Concomitant]
     Active Substance: DULOXETINE HYDROCHLORIDE
  5. TOPAMAZ [Concomitant]
  6. UNSPECIFIED INGREDIENT [Concomitant]
     Active Substance: UNSPECIFIED INGREDIENT
  7. VALTREX [Concomitant]
     Active Substance: VALACYCLOVIR HYDROCHLORIDE
  8. VITAMIN D3 [Concomitant]
     Active Substance: CHOLECALCIFEROL
  9. CALCIUM [Concomitant]
     Active Substance: CALCIUM
  10. HERBALS\TURMERIC [Concomitant]
     Active Substance: HERBALS\TURMERIC
  11. MAGNESIUM [Concomitant]
     Active Substance: MAGNESIUM
  12. PRASTERONE [Concomitant]
     Active Substance: PRASTERONE
  13. ZINC [Concomitant]
     Active Substance: ZINC
  14. ALLERGY MED [Concomitant]

REACTIONS (2)
  - COVID-19 [None]
  - COVID-19 [None]

NARRATIVE: CASE EVENT DATE: 20220707
